FAERS Safety Report 8626620 (Version 3)
Quarter: 2013Q3

REPORT INFORMATION
  Report Type: Spontaneous
  Country: BR (occurrence: BR)
  Receive Date: 20120620
  Receipt Date: 20130717
  Transmission Date: 20140515
  Serious: Yes (Other)
  Sender: FDA-Public Use
  Company Number: BR-ELI_LILLY_AND_COMPANY-BR201206005050

PATIENT
  Age: 13 Year
  Sex: Female
  Weight: 50 kg

DRUGS (7)
  1. HUMULIN NPH [Suspect]
     Indication: TYPE 1 DIABETES MELLITUS
     Dosage: 20 IU, EACH MORNING
     Route: 058
     Dates: start: 201108
  2. HUMULIN NPH [Suspect]
     Dosage: 10 IU, EACH EVENING
     Route: 058
     Dates: start: 201108
  3. HUMULIN NPH [Suspect]
     Dosage: 20 IU, EACH MORNING
     Route: 058
  4. HUMULIN NPH [Suspect]
     Dosage: 10 IU, EACH EVENING
     Route: 058
  5. HUMULIN R [Suspect]
     Indication: TYPE 1 DIABETES MELLITUS
     Dosage: UNK, UNKNOWN
     Route: 065
  6. LEVOTHYROXIN [Concomitant]
     Indication: THYROID DISORDER
     Dosage: UNK, UNKNOWN
     Route: 065
  7. ASMAX [Concomitant]
     Indication: CONVULSION
     Dosage: 25 MG, UNKNOWN
     Route: 065

REACTIONS (2)
  - Blood glucose increased [Recovered/Resolved]
  - Hypoglycaemia [Recovered/Resolved]
